FAERS Safety Report 15097275 (Version 1)
Quarter: 2018Q3

REPORT INFORMATION
  Report Type: Spontaneous
  Country: US (occurrence: US)
  Receive Date: 20180702
  Receipt Date: 20180702
  Transmission Date: 20181010
  Serious: No
  Sender: FDA-Public Use
  Company Number: US-SA-2018SA132684

PATIENT
  Age: 48 Year
  Sex: Female
  Weight: 55.33 kg

DRUGS (1)
  1. DUPIXENT [Suspect]
     Active Substance: DUPILUMAB
     Indication: ECZEMA
     Dosage: 300 MG,QOW
     Route: 058
     Dates: start: 20170727

REACTIONS (4)
  - Seasonal allergy [Unknown]
  - Rash [Not Recovered/Not Resolved]
  - Oral herpes [Not Recovered/Not Resolved]
  - Eye pruritus [Recovered/Resolved]

NARRATIVE: CASE EVENT DATE: 20170731
